FAERS Safety Report 5014627-X (Version None)
Quarter: 2006Q2

REPORT INFORMATION
  Report Type: 
  Country: None (occurrence: None)
  Receive Date: 20060531
  Receipt Date: 20041220
  Transmission Date: 20061013
  Serious: Yes (Hospitalization)
  Sender: FDA-Public Use
  Company Number: 2004AP06384

PATIENT
  Age: 24932 Day
  Sex: Male
  Weight: 63 kg

DRUGS (12)
  1. IRESSA [Suspect]
     Indication: NON-SMALL CELL LUNG CANCER
     Route: 048
     Dates: start: 20040802, end: 20040830
  2. IRESSA [Suspect]
     Indication: LUNG ADENOCARCINOMA
     Route: 048
     Dates: start: 20040802, end: 20040830
  3. IRESSA [Suspect]
     Route: 048
     Dates: start: 20040928
  4. IRESSA [Suspect]
     Route: 048
     Dates: start: 20040928
  5. IRESSA [Suspect]
     Route: 048
  6. IRESSA [Suspect]
     Route: 048
  7. MAGNESIUM OXIDE [Concomitant]
     Indication: CONSTIPATION
     Route: 048
     Dates: start: 20040716, end: 20040830
  8. MAGNESIUM OXIDE [Concomitant]
     Route: 048
     Dates: start: 20041009
  9. PURSENNID [Concomitant]
     Indication: CONSTIPATION
     Route: 048
     Dates: start: 20040716, end: 20040830
  10. PURSENNID [Concomitant]
     Route: 048
     Dates: start: 20041009
  11. ALSETIN [Concomitant]
     Indication: HYPERLIPIDAEMIA
     Route: 048
     Dates: end: 20040830
  12. ALLOPURINOL [Concomitant]
     Indication: HYPERURICAEMIA
     Route: 048
     Dates: end: 20040830

REACTIONS (7)
  - ALANINE AMINOTRANSFERASE INCREASED [None]
  - ASPARTATE AMINOTRANSFERASE INCREASED [None]
  - BLOOD LACTATE DEHYDROGENASE INCREASED [None]
  - HEPATIC ENZYME INCREASED [None]
  - LIVER DISORDER [None]
  - PRURITUS [None]
  - RASH [None]
